FAERS Safety Report 7748251-2 (Version None)
Quarter: 2011Q3

REPORT INFORMATION
  Report Type: 
  Country: None (occurrence: None)
  Receive Date: 20110913
  Receipt Date: 20110831
  Transmission Date: 20111222
  Serious: Yes (Death)
  Sender: FDA-Public Use
  Company Number: FR-MYLANLABS-2011S1018603

PATIENT
  Age: 81 Year
  Sex: Female

DRUGS (2)
  1. HYDROCHLOROTHIAZIDE [Suspect]
     Route: 065
  2. PREGABALIN [Suspect]
     Route: 065

REACTIONS (1)
  - HYPONATRAEMIA [None]
